FAERS Safety Report 9284401 (Version 4)
Quarter: 2013Q4

REPORT INFORMATION
  Report Type: Spontaneous
  Country: US (occurrence: US)
  Receive Date: 20130510
  Receipt Date: 20131203
  Transmission Date: 20140711
  Serious: Yes (Hospitalization, Disabling, Other)
  Sender: FDA-Public Use
  Company Number: US-009507513-1305USA002800

PATIENT
  Sex: Female
  Weight: 79.37 kg

DRUGS (4)
  1. FOSAMAX [Suspect]
     Indication: OSTEOPOROSIS
     Dosage: 5 MG, UNK
     Route: 048
     Dates: start: 20011130
  2. FOSAMAX [Suspect]
     Dosage: 10 MG, UNK
     Route: 048
     Dates: start: 20020228, end: 20020805
  3. FOSAMAX [Suspect]
     Dosage: 70 MG, QW
     Route: 048
     Dates: start: 20030414, end: 20080605
  4. ALENDRONATE SODIUM [Suspect]
     Indication: OSTEOPOROSIS
     Dosage: 70 MG, UNK
     Route: 048
     Dates: start: 20080915, end: 20091001

REACTIONS (75)
  - Closed fracture manipulation [Unknown]
  - Intramedullary rod insertion [Unknown]
  - Intramedullary rod insertion [Unknown]
  - Renal failure [Unknown]
  - Leukocytosis [Unknown]
  - Thrombosis prophylaxis [Unknown]
  - Low turnover osteopathy [Unknown]
  - Bursitis [Not Recovered/Not Resolved]
  - Pathological fracture [Unknown]
  - Fall [Unknown]
  - Depression [Unknown]
  - Urine analysis abnormal [Unknown]
  - Type 2 diabetes mellitus [Unknown]
  - Hypothyroidism [Unknown]
  - Drug intolerance [Unknown]
  - Onychomycosis [Unknown]
  - Hypertension [Unknown]
  - Urine analysis abnormal [Unknown]
  - Pathological fracture [Unknown]
  - Vertebroplasty [Unknown]
  - Compression fracture [Unknown]
  - Hypercholesterolaemia [Unknown]
  - Stress [Unknown]
  - Haemorrhoids [Unknown]
  - Diverticulitis [Unknown]
  - Bunion [Unknown]
  - Fatigue [Unknown]
  - Chronic obstructive pulmonary disease [Not Recovered/Not Resolved]
  - Dyspnoea [Unknown]
  - Chest discomfort [Unknown]
  - Pain [Not Recovered/Not Resolved]
  - Nail disorder [Unknown]
  - Glaucoma [Unknown]
  - Carpal tunnel syndrome [Unknown]
  - Urinary tract infection [Unknown]
  - Urinary incontinence [Not Recovered/Not Resolved]
  - Insomnia [Unknown]
  - Cataract [Unknown]
  - Exostosis [Unknown]
  - Seasonal allergy [Unknown]
  - Osteoarthritis [Unknown]
  - Toe operation [Unknown]
  - Tonsillectomy [Unknown]
  - Adenoidectomy [Unknown]
  - Bunion operation [Unknown]
  - Arthroscopy [Unknown]
  - Extrasystoles [Unknown]
  - Bone neoplasm [Unknown]
  - Blood cholesterol increased [Unknown]
  - Onychoclasis [Unknown]
  - Peptic ulcer [Unknown]
  - Asthma [Unknown]
  - Spinal column stenosis [Unknown]
  - Knee arthroplasty [Unknown]
  - Skin lesion [Unknown]
  - Road traffic accident [Recovered/Resolved]
  - Asthenia [Unknown]
  - Erythema [Unknown]
  - Arthralgia [Unknown]
  - Arthralgia [Unknown]
  - Gastrooesophageal reflux disease [Unknown]
  - Musculoskeletal pain [Unknown]
  - Arthralgia [Unknown]
  - Back pain [Not Recovered/Not Resolved]
  - Dysphagia [Not Recovered/Not Resolved]
  - Constipation [Not Recovered/Not Resolved]
  - Abdominal distension [Unknown]
  - Pain in extremity [Unknown]
  - Flatulence [Unknown]
  - Drug ineffective [Unknown]
  - Duodenal ulcer [Unknown]
  - Pain in extremity [Unknown]
  - Femur fracture [Not Recovered/Not Resolved]
  - Femur fracture [Not Recovered/Not Resolved]
  - Closed fracture manipulation [Unknown]
